FAERS Safety Report 14181186 (Version 1)
Quarter: 2017Q4

REPORT INFORMATION
  Report Type: Spontaneous
  Country: DK (occurrence: DK)
  Receive Date: 20171112
  Receipt Date: 20171112
  Transmission Date: 20180321
  Serious: Yes (Other)
  Sender: FDA-Public Use
  Company Number: DK-TEVA-704920ACC

PATIENT
  Sex: Male
  Weight: 90 kg

DRUGS (4)
  1. PREDNISOLON [Concomitant]
     Active Substance: PREDNISOLONE
     Indication: IMMUNOSUPPRESSANT DRUG THERAPY
     Dates: start: 20110511
  2. CIPROFLOXACIN ^HEXAL^ [Suspect]
     Active Substance: CIPROFLOXACIN
     Indication: INFECTION
     Dosage: 1000 MILLIGRAM DAILY; STRENGTH: 500 MG.
     Route: 048
     Dates: start: 20150807
  3. METRONIDAZOL [Concomitant]
     Active Substance: METRONIDAZOLE
     Indication: CLOSTRIDIAL INFECTION
     Dates: start: 20150906, end: 20150920
  4. CIPROFLOXACIN ^ACTAVIS^ [Suspect]
     Active Substance: CIPROFLOXACIN
     Indication: INFECTION
     Dosage: 1000 MILLIGRAM DAILY; STRENGTH: 500 MG
     Route: 048
     Dates: start: 2016, end: 201603

REACTIONS (10)
  - Tendon discomfort [Unknown]
  - Tendon pain [Not Recovered/Not Resolved]
  - Hypoacusis [Not Recovered/Not Resolved]
  - Mobility decreased [Unknown]
  - Enthesopathy [Unknown]
  - Loss of personal independence in daily activities [Unknown]
  - Sleep disorder [Unknown]
  - Oropharyngeal pain [Unknown]
  - Arthralgia [Unknown]
  - Hallucination [Unknown]

NARRATIVE: CASE EVENT DATE: 2015
